FAERS Safety Report 24386874 (Version 1)
Quarter: 2024Q4

REPORT INFORMATION
  Report Type: Spontaneous
  Country: BR (occurrence: BR)
  Receive Date: 20241002
  Receipt Date: 20241002
  Transmission Date: 20250115
  Serious: Yes (Other)
  Sender: ABBVIE
  Company Number: BR-ABBVIE-5916569

PATIENT
  Age: 43 Year
  Sex: Female
  Weight: 53 kg

DRUGS (6)
  1. BOTOX [Suspect]
     Active Substance: ONABOTULINUMTOXINA
     Indication: Product used for unknown indication
     Dosage: TIME INTERVAL: AS NECESSARY
     Route: 065
     Dates: start: 20240603, end: 20240603
  2. HYALURONATE SODIUM\TRIBASIC CALCIUM PHOSPHATE [Suspect]
     Active Substance: HYALURONATE SODIUM\TRIBASIC CALCIUM PHOSPHATE
     Indication: Dermal filler injection
     Dosage: 2 AMPOULES
     Route: 065
     Dates: start: 20240603, end: 20240603
  3. JUVEDERM VOLUMA XC [Suspect]
     Active Substance: HYALURONIC ACID\LIDOCAINE HYDROCHLORIDE
     Indication: Dermal filler injection
     Route: 065
     Dates: start: 20240603, end: 20240603
  4. HYALURONIC ACID\LIDOCAINE [Suspect]
     Active Substance: HYALURONIC ACID\LIDOCAINE
     Indication: Dermal filler injection
     Route: 065
     Dates: start: 20240603, end: 20240603
  5. HYALURONIC ACID\LIDOCAINE HYDROCHLORIDE [Suspect]
     Active Substance: HYALURONIC ACID\LIDOCAINE HYDROCHLORIDE
     Indication: Dermal filler injection
     Route: 065
     Dates: start: 20240603, end: 20240603
  6. PAROXETINE HYDROCHLORIDE [Concomitant]
     Active Substance: PAROXETINE HYDROCHLORIDE
     Indication: Product used for unknown indication
     Dosage: 20 MILLIGRAM

REACTIONS (4)
  - Injection site panniculitis [Not Recovered/Not Resolved]
  - Injection site nodule [Not Recovered/Not Resolved]
  - Face oedema [Not Recovered/Not Resolved]
  - Nodule [Not Recovered/Not Resolved]

NARRATIVE: CASE EVENT DATE: 20240820
